FAERS Safety Report 7368326-X (Version None)
Quarter: 2011Q1

REPORT INFORMATION
  Report Type: 
  Country: None (occurrence: None)
  Receive Date: 20110323
  Receipt Date: 20110311
  Transmission Date: 20110831
  Serious: Yes (Other)
  Sender: FDA-Public Use
  Company Number: US-PFIZER INC-2006069841

PATIENT
  Sex: Male

DRUGS (8)
  1. NEURONTIN [Suspect]
     Dosage: 300MG CAPSULE BID
     Dates: start: 20090407
  2. NEURONTIN [Suspect]
     Dosage: 300 MG, 2 CAPSULES AT MORNING, 1 CAPSULE AT NOON, 2 CAPSULES AT NIGHT
     Dates: start: 19980717
  3. NEURONTIN [Suspect]
     Dosage: 900 MG, TWICE A DAY
     Dates: start: 20100107, end: 20100112
  4. NEURONTIN [Suspect]
     Dosage: 300 MG, 1 CAPSULE 3X/DAY
     Dates: start: 19980226
  5. NEURONTIN [Suspect]
     Dosage: 300 MG, 2 CAPSULES 4X/DAY
     Dates: start: 19980921
  6. NEURONTIN [Suspect]
     Dosage: 300 MG, UNK
     Dates: start: 20010402
  7. NEURONTIN [Suspect]
     Dosage: 300 MG, 3 CAPSULES 4X/DAY
     Dates: start: 19991022
  8. NEURONTIN [Suspect]
     Dosage: 300 MG 3 CAPSULES QID
     Dates: start: 20000411

REACTIONS (1)
  - SUICIDE ATTEMPT [None]
